FAERS Safety Report 6411934 (Version 2)
Quarter: 2021Q1

REPORT INFORMATION
  Report Type: Spontaneous
  Country: US (occurrence: US)
  Receive Date: 20070912
  Receipt Date: 20210120
  Transmission Date: 20210420
  Serious: Yes (Hospitalization, Other)
  Sender: FDA-Public Use
  Company Number: US-PURDUE-USA_2007_0028519

PATIENT
  Age: 35 Year
  Sex: Male
  Weight: 81.63 kg

DRUGS (6)
  1. ASPIRIN BAYER [Concomitant]
     Active Substance: ASPIRIN
     Indication: PRODUCT USED FOR UNKNOWN INDICATION
     Dosage: 81 MG, UNK
     Route: 048
  2. METHADONE [Suspect]
     Active Substance: METHADONE HYDROCHLORIDE
     Indication: PRODUCT USED FOR UNKNOWN INDICATION
     Dosage: UNK
     Route: 065
  3. OXYCONTIN [Suspect]
     Active Substance: OXYCODONE HYDROCHLORIDE
     Indication: PAIN
     Dosage: 40 MG, BID
     Route: 048
     Dates: start: 19991208, end: 200109
  4. OXYIR [Concomitant]
     Active Substance: OXYCODONE HYDROCHLORIDE
     Indication: PRODUCT USED FOR UNKNOWN INDICATION
     Dosage: 5 MG, UNK
     Route: 048
  5. SERZONE [Concomitant]
     Active Substance: NEFAZODONE HYDROCHLORIDE
     Indication: PRODUCT USED FOR UNKNOWN INDICATION
     Dosage: 10 MG, DAILY
     Route: 048
  6. KLONOPIN [Concomitant]
     Active Substance: CLONAZEPAM
     Indication: PRODUCT USED FOR UNKNOWN INDICATION
     Dosage: .5 MG, BID
     Route: 048

REACTIONS (28)
  - Cerebral artery embolism [Unknown]
  - Somnolence [Unknown]
  - Drug dependence [Unknown]
  - Withdrawal syndrome [Unknown]
  - Personality disorder [Unknown]
  - Depression [Unknown]
  - Panic attack [Unknown]
  - Child abuse [Unknown]
  - Disturbance in attention [Unknown]
  - Cerebrovascular accident [Unknown]
  - Communication disorder [Unknown]
  - Night sweats [Unknown]
  - Erectile dysfunction [Unknown]
  - Heart rate decreased [Unknown]
  - Asthenia [Unknown]
  - Fall [Unknown]
  - Pain [Unknown]
  - Gait disturbance [Unknown]
  - Nervousness [Unknown]
  - Amnesia [Unknown]
  - Decreased appetite [Unknown]
  - Blood testosterone decreased [Unknown]
  - Spousal abuse [Unknown]
  - Delusion [Unknown]
  - Mood swings [Unknown]
  - Emotional disorder [Unknown]
  - Back pain [Unknown]
  - Hyperhidrosis [Unknown]

NARRATIVE: CASE EVENT DATE: 20011206
